FAERS Safety Report 8232682-0 (Version None)
Quarter: 2012Q1

REPORT INFORMATION
  Report Type: 
  Country: None (occurrence: None)
  Receive Date: 20120323
  Receipt Date: 20120309
  Transmission Date: 20120608
  Serious: Yes (Other)
  Sender: FDA-Public Use
  Company Number: PHHY2012JP017762

PATIENT
  Age: 74 Year
  Sex: Female

DRUGS (5)
  1. PREDNISOLONE [Concomitant]
     Dosage: 50 MG, UNK
  2. STEROIDS NOS [Concomitant]
  3. PREDNISOLONE [Concomitant]
     Dosage: 10 MG, UNK
  4. CYCLOPHOSPHAMIDE [Concomitant]
     Dosage: UNK UKN, UNK
     Route: 042
  5. CYCLOSPORINE [Suspect]

REACTIONS (2)
  - LIVER DISORDER [None]
  - GASTRIC CANCER [None]
